FAERS Safety Report 17005653 (Version 1)
Quarter: 2019Q4

REPORT INFORMATION
  Report Type: Spontaneous
  Country: DE (occurrence: DE)
  Receive Date: 20191107
  Receipt Date: 20191107
  Transmission Date: 20200122
  Serious: Yes (Hospitalization)
  Sender: FDA-Public Use
  Company Number: DE-MYLANLABS-2019M1105932

PATIENT
  Age: 14 Year
  Sex: Female
  Weight: 56 kg

DRUGS (4)
  1. BUCCOLAM [Concomitant]
     Active Substance: MIDAZOLAM HYDROCHLORIDE
     Indication: EPILEPSY
     Dosage: 1 DOSAGE FORM
     Route: 002
  2. LACTASE [Concomitant]
     Active Substance: LACTASE
     Dosage: BEI BEDARF
     Route: 048
  3. LAMOTRIGINE. [Suspect]
     Active Substance: LAMOTRIGINE
     Indication: EPILEPSY
     Dosage: 400 MILLIGRAM, QD
     Route: 048
  4. LEVETIRACETAM. [Suspect]
     Active Substance: LEVETIRACETAM
     Indication: EPILEPSY
     Dosage: 2000 MILLIGRAM, QD
     Route: 048

REACTIONS (5)
  - Generalised tonic-clonic seizure [Recovered/Resolved]
  - Fall [Recovered/Resolved]
  - Product administration error [Recovered/Resolved]
  - Product dose omission [Recovered/Resolved]
  - Treatment noncompliance [Recovered/Resolved]

NARRATIVE: CASE EVENT DATE: 201808
